FAERS Safety Report 10854826 (Version 1)
Quarter: 2015Q1

REPORT INFORMATION
  Report Type: Spontaneous
  Country: US (occurrence: None)
  Receive Date: 20150218
  Receipt Date: 20150218
  Transmission Date: 20150721
  Serious: Yes (Hospitalization)
  Sender: FDA-Public Use
  Company Number: None

PATIENT
  Age: 57 Year
  Sex: Male
  Weight: 72.58 kg

DRUGS (9)
  1. LEXAPRO [Concomitant]
     Active Substance: ESCITALOPRAM OXALATE
  2. HARVONI [Suspect]
     Active Substance: LEDIPASVIR\SOFOSBUVIR
     Indication: HEPATITIS C
     Route: 048
     Dates: start: 20141223
  3. SPIRONOLACTONE. [Concomitant]
     Active Substance: SPIRONOLACTONE
  4. NEOMYCIN [Concomitant]
     Active Substance: NEOMYCIN
  5. FUROSEMIDE ORAL [Concomitant]
  6. RIFAXIMIN [Concomitant]
     Active Substance: RIFAXIMIN
  7. PROMETHAZINE [Concomitant]
     Active Substance: PROMETHAZINE\PROMETHAZINE HYDROCHLORIDE
  8. LACTULOSE. [Concomitant]
     Active Substance: LACTULOSE
  9. NADOLOL. [Concomitant]
     Active Substance: NADOLOL

REACTIONS (3)
  - Frequent bowel movements [None]
  - Hepatic encephalopathy [None]
  - Anaemia [None]

NARRATIVE: CASE EVENT DATE: 20150107
